FAERS Safety Report 6863756-4 (Version None)
Quarter: 2010Q3

REPORT INFORMATION
  Report Type: 
  Country: None (occurrence: None)
  Receive Date: 20100721
  Receipt Date: 20080311
  Transmission Date: 20110219
  Serious: Yes (Other)
  Sender: FDA-Public Use
  Company Number: US-PFIZER INC-2008022853

PATIENT
  Sex: Female
  Weight: 90.909 kg

DRUGS (10)
  1. CHANTIX [Suspect]
     Indication: SMOKING CESSATION THERAPY
     Route: 048
     Dates: start: 20070801, end: 20070901
  2. HUMULIN R [Concomitant]
  3. LANTUS [Concomitant]
  4. TYLENOL [Concomitant]
  5. METOPROLOL [Concomitant]
  6. NEURONTIN [Concomitant]
  7. AMITRIPTYLINE HYDROCHLORIDE [Concomitant]
  8. ZOCOR [Concomitant]
  9. VALSARTAN [Concomitant]
  10. ALL OTHER THERAPEUTIC PRODUCTS [Concomitant]

REACTIONS (1)
  - RENAL FAILURE [None]
